FAERS Safety Report 8319279-9 (Version None)
Quarter: 2012Q2

REPORT INFORMATION
  Report Type: 
  Country: None (occurrence: None)
  Receive Date: 20120427
  Receipt Date: 20090904
  Transmission Date: 20120825
  Serious: No
  Sender: FDA-Public Use
  Company Number: US-TEVA-2009010210

PATIENT
  Sex: Female
  Weight: 43.584 kg

DRUGS (7)
  1. NUVIGIL [Suspect]
     Indication: FATIGUE
     Dosage: 150 MILLIGRAM;
     Route: 048
     Dates: start: 20090728, end: 20090824
  2. NUVIGIL [Suspect]
     Dosage: 250 MILLIGRAM;
     Route: 048
     Dates: start: 20090825, end: 20090825
  3. WELLBUTRIN [Concomitant]
  4. AMBIEN [Concomitant]
  5. LORTAB [Concomitant]
  6. NUVIGIL [Suspect]
     Dosage: 125 MILLIGRAM;
     Route: 048
     Dates: start: 20090826, end: 20090826
  7. MORPHINE [Concomitant]

REACTIONS (24)
  - DYSGEUSIA [None]
  - SKIN REACTION [None]
  - VISION BLURRED [None]
  - SWOLLEN TONGUE [None]
  - YELLOW SKIN [None]
  - DECREASED APPETITE [None]
  - DRUG TOLERANCE [None]
  - ASTHENIA [None]
  - NAUSEA [None]
  - MOOD SWINGS [None]
  - HEADACHE [None]
  - GINGIVITIS [None]
  - TONGUE COATED [None]
  - DIZZINESS [None]
  - PARAESTHESIA [None]
  - WEIGHT DECREASED [None]
  - LIP SWELLING [None]
  - ANXIETY [None]
  - OEDEMA PERIPHERAL [None]
  - ORAL PAIN [None]
  - LIP DRY [None]
  - BLISTER [None]
  - OCULAR ICTERUS [None]
  - FATIGUE [None]
